FAERS Safety Report 7283709-4 (Version None)
Quarter: 2011Q1

REPORT INFORMATION
  Report Type: 
  Country: None (occurrence: None)
  Receive Date: 20110204
  Receipt Date: 20110204
  Transmission Date: 20110831
  Serious: Yes (Other)
  Sender: FDA-Public Use
  Company Number: None

PATIENT
  Sex: Female
  Weight: 77.1115 kg

DRUGS (5)
  1. TRICORE [Concomitant]
  2. CLONIDINE [Concomitant]
  3. HYDROCHLOROTHIAZIDE [Concomitant]
  4. AMLODIPINE [Suspect]
     Indication: BLOOD PRESSURE
     Dosage: 10 MG 1 DAILY A.M.
     Dates: start: 20100801, end: 20110120
  5. LIPITOR [Concomitant]

REACTIONS (5)
  - FOOD INTOLERANCE [None]
  - DYSGEUSIA [None]
  - SALIVARY GLAND DISORDER [None]
  - PARAESTHESIA [None]
  - HYPOPHAGIA [None]
